FAERS Safety Report 18975465 (Version 1)
Quarter: 2021Q1

REPORT INFORMATION
  Report Type: Spontaneous
  Country: DE (occurrence: DE)
  Receive Date: 20210305
  Receipt Date: 20210305
  Transmission Date: 20210420
  Serious: Yes (Other)
  Sender: FDA-Public Use
  Company Number: DE-ASTRAZENECA-2021A087332

PATIENT
  Sex: Female

DRUGS (2)
  1. SEROQUEL [Suspect]
     Active Substance: QUETIAPINE FUMARATE
     Dosage: 12.5MG UNKNOWN
     Route: 048
  2. SEROQUEL [Suspect]
     Active Substance: QUETIAPINE FUMARATE
     Dosage: SOMETIMES TAKES 1/2 OR 1/425.0MG UNKNOWN
     Route: 048

REACTIONS (13)
  - Somnolence [Unknown]
  - Sensory overload [Unknown]
  - Withdrawal syndrome [Unknown]
  - Headache [Unknown]
  - Tremor [Unknown]
  - Psychomotor hyperactivity [Unknown]
  - Feeling abnormal [Unknown]
  - Memory impairment [Unknown]
  - Trigeminal neuralgia [Unknown]
  - Drug intolerance [Unknown]
  - Mania [Unknown]
  - Thinking abnormal [Unknown]
  - Intentional product misuse [Unknown]
